FAERS Safety Report 23558603 (Version 1)
Quarter: 2024Q1

REPORT INFORMATION
  Report Type: Report from Study
  Country: IN (occurrence: IN)
  Receive Date: 20240223
  Receipt Date: 20240223
  Transmission Date: 20240410
  Serious: Yes (Other)
  Sender: FDA-Public Use
  Company Number: IN-MYLANLABS-2024M1016295

PATIENT
  Age: 27 Year
  Sex: Male

DRUGS (1)
  1. TACROLIMUS [Suspect]
     Active Substance: TACROLIMUS
     Indication: Immunosuppressant drug therapy
     Dosage: UNK
     Route: 065

REACTIONS (4)
  - Polyuria [Recovering/Resolving]
  - Transplant rejection [Recovering/Resolving]
  - Blood creatinine increased [Recovering/Resolving]
  - Toxicity to various agents [Recovering/Resolving]
